FAERS Safety Report 17768475 (Version 2)
Quarter: 2020Q3

REPORT INFORMATION
  Report Type: Report from Study
  Country: None (occurrence: US)
  Receive Date: 20200512
  Receipt Date: 20200703
  Transmission Date: 20201102
  Serious: Yes (Hospitalization, Other)
  Sender: FDA-Public Use
  Company Number: US-ABBVIE-20K-163-3366627-00

PATIENT
  Sex: Male
  Weight: 79.45 kg

DRUGS (8)
  1. ATORVASTATIN [Concomitant]
     Active Substance: ATORVASTATIN
     Indication: BLOOD CHOLESTEROL ABNORMAL
  2. LISINOPRIL. [Concomitant]
     Active Substance: LISINOPRIL
     Indication: HYPERTENSION
  3. METHOTREXATE. [Concomitant]
     Active Substance: METHOTREXATE
     Indication: PRODUCT USED FOR UNKNOWN INDICATION
     Dosage: TO LOWER IMMUNE RESPOND AND HELP WITH HUMIRA
  4. TAMSULOSIN [Concomitant]
     Active Substance: TAMSULOSIN
     Indication: URINARY RETENTION
  5. TAMSULOSIN [Concomitant]
     Active Substance: TAMSULOSIN
     Indication: MICTURITION DISORDER
  6. FOLIC ACID. [Concomitant]
     Active Substance: FOLIC ACID
     Indication: SKIN DISORDER PROPHYLAXIS
     Dosage: EXCEPT ON HUMIRA INJECTION DATE
  7. FISH OIL [Concomitant]
     Active Substance: FISH OIL
     Indication: PRODUCT USED FOR UNKNOWN INDICATION
     Dosage: SUPPLEMENT
  8. HUMIRA [Suspect]
     Active Substance: ADALIMUMAB
     Indication: RHEUMATOID ARTHRITIS
     Route: 058
     Dates: start: 201605

REACTIONS (9)
  - Arthralgia [Not Recovered/Not Resolved]
  - Pain in extremity [Not Recovered/Not Resolved]
  - Hip arthroplasty [Unknown]
  - Shoulder arthroplasty [Unknown]
  - Pain [Unknown]
  - Osteoarthritis [Unknown]
  - Joint range of motion decreased [Unknown]
  - Insomnia [Not Recovered/Not Resolved]
  - Cartilage atrophy [Unknown]

NARRATIVE: CASE EVENT DATE: 2016
